FAERS Safety Report 7228386-3 (Version None)
Quarter: 2011Q1

REPORT INFORMATION
  Report Type: 
  Country: None (occurrence: None)
  Receive Date: 20110114
  Receipt Date: 20101122
  Transmission Date: 20110831
  Serious: Yes (Other)
  Sender: FDA-Public Use
  Company Number: US-PURDUE-USA-2010-0056225

PATIENT
  Sex: Male

DRUGS (1)
  1. OXYCONTIN [Suspect]
     Indication: BACK INJURY
     Dosage: UNK
     Dates: start: 20020426, end: 20040506

REACTIONS (9)
  - ROAD TRAFFIC ACCIDENT [None]
  - SELF INJURIOUS BEHAVIOUR [None]
  - IMPULSIVE BEHAVIOUR [None]
  - DELUSION [None]
  - SCHIZOPHRENIA, PARANOID TYPE [None]
  - AMNESIA [None]
  - WEIGHT DECREASED [None]
  - SUICIDE ATTEMPT [None]
  - FAMILY STRESS [None]
